FAERS Safety Report 17279006 (Version 1)
Quarter: 2020Q1

REPORT INFORMATION
  Report Type: Spontaneous
  Country: IT (occurrence: IT)
  Receive Date: 20200116
  Receipt Date: 20200116
  Transmission Date: 20200409
  Serious: Yes (Hospitalization, Other)
  Sender: FDA-Public Use
  Company Number: IT-SA-2020SA006697

PATIENT
  Age: 99 Year
  Sex: Female

DRUGS (4)
  1. LAEVOLAC [Concomitant]
     Active Substance: LACTULOSE
  2. LUVION [CANRENONE] [Concomitant]
     Active Substance: CANRENONE
  3. CLEXANE [Suspect]
     Active Substance: ENOXAPARIN SODIUM
     Indication: THROMBOSIS PROPHYLAXIS
     Dosage: 1 DF, QD
     Route: 058
     Dates: start: 20191210, end: 20191223
  4. LASIX [Concomitant]
     Active Substance: FUROSEMIDE

REACTIONS (2)
  - Rectal haemorrhage [Recovering/Resolving]
  - Abdominal pain upper [Recovering/Resolving]

NARRATIVE: CASE EVENT DATE: 20191223
